FAERS Safety Report 4975308-1 (Version None)
Quarter: 2006Q2

REPORT INFORMATION
  Report Type: 
  Country: None (occurrence: None)
  Receive Date: 20060417
  Receipt Date: 20060417
  Transmission Date: 20061013
  Serious: Yes (Hospitalization)
  Sender: FDA-Public Use
  Company Number: None

PATIENT
  Sex: Male
  Weight: 71.2147 kg

DRUGS (1)
  1. IRESSA [Suspect]
     Indication: PANCREATIC CARCINOMA
     Dosage: 250 MG DAILY PO
     Route: 048
     Dates: start: 20060404, end: 20060412

REACTIONS (9)
  - CELLULITIS [None]
  - ERYTHEMA [None]
  - GRANULOCYTE COUNT DECREASED [None]
  - HAEMOGLOBIN DECREASED [None]
  - OEDEMA PERIPHERAL [None]
  - PITTING OEDEMA [None]
  - PYREXIA [None]
  - TENDERNESS [None]
  - WHITE BLOOD CELL COUNT DECREASED [None]
